FAERS Safety Report 9702789 (Version 2)
Quarter: 2015Q1

REPORT INFORMATION
  Report Type: Spontaneous
  Country: US (occurrence: US)
  Receive Date: 20131121
  Receipt Date: 20150202
  Transmission Date: 20150721
  Serious: Yes (Hospitalization, Other)
  Sender: FDA-Public Use
  Company Number: US-GLAXOSMITHKLINE-A1050494A

PATIENT
  Sex: Female

DRUGS (11)
  1. ADVAIR HFA [Suspect]
     Active Substance: FLUTICASONE PROPIONATE\SALMETEROL XINAFOATE
     Indication: ASTHMA
     Dosage: 1 PUFF(S), BID
     Route: 055
     Dates: start: 2008
  2. ADVAIR HFA [Suspect]
     Active Substance: FLUTICASONE PROPIONATE\SALMETEROL XINAFOATE
     Indication: RESPIRATORY DISORDER
     Dosage: 1 PUFF(S), UNK
     Route: 055
     Dates: start: 2008
  3. ZOFRAN [Concomitant]
     Active Substance: ONDANSETRON HYDROCHLORIDE
  4. SPIRIVA [Concomitant]
     Active Substance: TIOTROPIUM BROMIDE MONOHYDRATE
  5. LOMOTIL [Concomitant]
     Active Substance: ATROPINE SULFATE\DIPHENOXYLATE HYDROCHLORIDE
  6. COUMADIN [Concomitant]
     Active Substance: WARFARIN SODIUM
  7. ADVAIR HFA [Suspect]
     Active Substance: FLUTICASONE PROPIONATE\SALMETEROL XINAFOATE
     Indication: CHRONIC OBSTRUCTIVE PULMONARY DISEASE
  8. DEXAMETHASONE. [Concomitant]
     Active Substance: DEXAMETHASONE
  9. GABAPENTIN. [Concomitant]
     Active Substance: GABAPENTIN
  10. FOLIC ACID. [Concomitant]
     Active Substance: FOLIC ACID
  11. XANAX [Concomitant]
     Active Substance: ALPRAZOLAM

REACTIONS (10)
  - Lung operation [Unknown]
  - Dyspnoea [Unknown]
  - Pulmonary embolism [Recovered/Resolved]
  - Drug administration error [Unknown]
  - Dyspnoea exertional [Unknown]
  - Pneumonia [Recovered/Resolved]
  - Memory impairment [Unknown]
  - Chronic obstructive pulmonary disease [Unknown]
  - Lung neoplasm malignant [Not Recovered/Not Resolved]
  - Pneumonectomy [Unknown]

NARRATIVE: CASE EVENT DATE: 2008
